FAERS Safety Report 5221311-6 (Version None)
Quarter: 2007Q1

REPORT INFORMATION
  Report Type: 
  Country: None (occurrence: None)
  Receive Date: 20070126
  Receipt Date: 20070116
  Transmission Date: 20070707
  Serious: Yes (Death)
  Sender: FDA-Public Use
  Company Number: DE-PFIZER INC-2006150563

PATIENT
  Sex: Male

DRUGS (13)
  1. SU-011,248 [Suspect]
     Indication: METASTATIC RENAL CELL CARCINOMA
     Route: 048
     Dates: start: 20050523, end: 20061121
  2. LOPERAMID [Concomitant]
     Route: 048
     Dates: start: 20060603, end: 20061122
  3. TILIDINE HYDROCHLORIDE [Concomitant]
     Route: 048
     Dates: start: 20060619, end: 20061122
  4. LORMETAZEPAM [Concomitant]
     Route: 048
     Dates: end: 20061122
  5. TAMSULOSIN HCL [Concomitant]
     Route: 048
     Dates: end: 20061122
  6. FINASTERIDE [Concomitant]
     Route: 048
     Dates: end: 20061122
  7. DIGITOXIN TAB [Concomitant]
     Route: 048
     Dates: end: 20061122
  8. METOPROLOL [Concomitant]
     Route: 048
     Dates: end: 20061122
  9. ASPIRIN [Concomitant]
     Route: 048
     Dates: end: 20061122
  10. INSULIN [Concomitant]
     Route: 058
     Dates: end: 20061122
  11. MEDAZEPAM [Concomitant]
     Route: 058
     Dates: end: 20061122
  12. TRAMADOL HCL [Concomitant]
     Route: 058
     Dates: end: 20061122
  13. NALOXONE [Concomitant]
     Route: 048

REACTIONS (1)
  - CARDIAC FAILURE [None]
